FAERS Safety Report 5023771-2 (Version None)
Quarter: 2006Q2

REPORT INFORMATION
  Report Type: 
  Country: None (occurrence: None)
  Receive Date: 20060612
  Receipt Date: 20060530
  Transmission Date: 20061013
  Serious: Yes (Disabling, Other)
  Sender: FDA-Public Use
  Company Number: JP-NOVOPROD-253738

PATIENT
  Age: 21 Year
  Sex: Female

DRUGS (2)
  1. PENFILL 30R CHU [Suspect]
     Indication: DRUG USE FOR UNKNOWN INDICATION
     Route: 058
  2. PENFILL 50R CHU [Suspect]
     Indication: DRUG USE FOR UNKNOWN INDICATION
     Route: 058

REACTIONS (5)
  - HEADACHE [None]
  - MOVEMENT DISORDER [None]
  - PERSONALITY DISORDER [None]
  - STATUS EPILEPTICUS [None]
  - VOMITING [None]
